FAERS Safety Report 14798906 (Version 4)
Quarter: 2018Q2

REPORT INFORMATION
  Report Type: Spontaneous
  Country: JP (occurrence: JP)
  Receive Date: 20180424
  Receipt Date: 20180613
  Transmission Date: 20180711
  Serious: Yes (Disabling, Other)
  Sender: FDA-Public Use
  Company Number: JP-ASTRAZENECA-2018SE52957

PATIENT
  Age: 667 Month
  Sex: Male
  Weight: 74 kg

DRUGS (8)
  1. TRYPTANOL [Concomitant]
     Active Substance: AMITRIPTYLINE
     Indication: HYPOAESTHESIA
     Route: 048
     Dates: start: 20180404
  2. RIVOTRIL [Concomitant]
     Active Substance: CLONAZEPAM
     Indication: HYPOAESTHESIA
     Route: 048
     Dates: start: 201601
  3. TAGRISSO [Suspect]
     Active Substance: OSIMERTINIB
     Indication: NON-SMALL CELL LUNG CANCER
     Route: 048
     Dates: start: 20180330
  4. NEXIUM [Concomitant]
     Active Substance: ESOMEPRAZOLE MAGNESIUM
     Indication: ABDOMINAL PAIN UPPER
     Route: 048
     Dates: start: 20160213
  5. LAC-B [Concomitant]
     Active Substance: BIFIDOBACTERIUM SPP.
     Indication: DIARRHOEA
     Route: 048
     Dates: start: 20160217
  6. CALONAL [Concomitant]
     Active Substance: ACETAMINOPHEN
     Indication: HYPOAESTHESIA
     Route: 048
     Dates: start: 20160209
  7. ALLOPURINOL. [Concomitant]
     Active Substance: ALLOPURINOL
     Indication: HYPERURICAEMIA
     Route: 048
     Dates: start: 20180405
  8. E KEPPRA [Concomitant]
     Active Substance: LEVETIRACETAM
     Indication: SEIZURE
     Route: 048
     Dates: start: 20180419

REACTIONS (2)
  - Cerebral infarction [Not Recovered/Not Resolved]
  - Seizure [Not Recovered/Not Resolved]

NARRATIVE: CASE EVENT DATE: 201804
